FAERS Safety Report 24641876 (Version 1)
Quarter: 2024Q4

REPORT INFORMATION
  Report Type: Spontaneous
  Country: US (occurrence: None)
  Receive Date: 20241119
  Receipt Date: 20241119
  Transmission Date: 20250114
  Serious: Yes (Life-Threatening, Other)
  Sender: Public
  Company Number: None

PATIENT
  Age: 34 Year
  Sex: Female
  Weight: 90 kg

DRUGS (1)
  1. SEROQUEL [Suspect]
     Active Substance: QUETIAPINE FUMARATE
     Indication: Depression
     Dosage: FREQUENCY : AT BEDTIME;?
     Route: 048
     Dates: start: 20241022, end: 20241102

REACTIONS (3)
  - Heart rate increased [None]
  - Cold sweat [None]
  - Neuroleptic malignant syndrome [None]

NARRATIVE: CASE EVENT DATE: 20241022
